FAERS Safety Report 9671864 (Version 2)
Quarter: 2013Q4

REPORT INFORMATION
  Report Type: Spontaneous
  Country: IT (occurrence: IT)
  Receive Date: 20131106
  Receipt Date: 20131129
  Transmission Date: 20140711
  Serious: Yes (Hospitalization, Other)
  Sender: FDA-Public Use
  Company Number: IT-BRISTOL-MYERS SQUIBB COMPANY-19680636

PATIENT
  Age: 85 Year
  Sex: Female

DRUGS (9)
  1. COUMADIN TABS 5 MG [Suspect]
     Indication: ATRIAL FIBRILLATION
     Route: 048
     Dates: end: 20130822
  2. IBUPROFEN [Interacting]
     Indication: OSTEOARTHRITIS
     Dosage: INTERRUPTED ON 22AUG2013
     Route: 048
  3. EFEXOR [Interacting]
     Dosage: 75 MG CAPS
     Route: 048
  4. ATENOLOL [Interacting]
     Indication: HYPERTENSION
     Route: 048
  5. LANOXIN [Suspect]
     Indication: CARDIAC DISORDER
     Dosage: SUSPENSION FROM 25-AUG-2013: REINTR-30AUG13:0.125 MG TABS ?READMINISTERED AT HOME(1TAB PER DAY)
     Route: 048
  6. LASIX [Suspect]
     Indication: ESSENTIAL HYPERTENSION
     Dosage: 25 MG TABS
     Route: 048
  7. SPIROFUR [Suspect]
     Indication: HYPERTENSION
     Dosage: 50+20 MG CAPS
     Route: 048
  8. CARDURA [Concomitant]
     Indication: HYPERTENSION
     Dosage: 2 MG TABS
     Route: 048
  9. TRIATEC [Concomitant]
     Indication: HYPERTENSION
     Dosage: 2.5 MG TABS
     Route: 048

REACTIONS (7)
  - Cardioactive drug level increased [Recovering/Resolving]
  - Melaena [Recovering/Resolving]
  - Anaemia [Recovering/Resolving]
  - Asthenia [Recovering/Resolving]
  - Vomiting [Recovering/Resolving]
  - International normalised ratio increased [Recovering/Resolving]
  - Drug interaction [Unknown]
